FAERS Safety Report 17063075 (Version 2)
Quarter: 2020Q1

REPORT INFORMATION
  Report Type: Spontaneous
  Country: US (occurrence: US)
  Receive Date: 20191122
  Receipt Date: 20200129
  Transmission Date: 20200409
  Serious: No
  Sender: FDA-Public Use
  Company Number: US-SHIRE-US201940332

PATIENT
  Sex: Female

DRUGS (2)
  1. GATTEX [Suspect]
     Active Substance: TEDUGLUTIDE\WATER
     Dosage: 0.24 UNK, 1X/DAY:QD
     Route: 058
     Dates: start: 20181010
  2. GATTEX [Suspect]
     Active Substance: TEDUGLUTIDE\WATER
     Indication: SHORT-BOWEL SYNDROME
     Dosage: 2.5 MILLIGRAM, 1X/DAY:QD
     Route: 058
     Dates: start: 2018

REACTIONS (1)
  - Diarrhoea [Recovered/Resolved]
